FAERS Safety Report 26069291 (Version 1)
Quarter: 2025Q4

REPORT INFORMATION
  Report Type: Spontaneous
  Country: US (occurrence: None)
  Receive Date: 20251120
  Receipt Date: 20251120
  Transmission Date: 20260118
  Serious: Yes (Hospitalization)
  Sender: FDA-CTU
  Company Number: None

PATIENT
  Age: 67 Year
  Sex: Female
  Weight: 88.1 kg

DRUGS (2)
  1. DARATUMUMAB\HYALURONIDASE-FIHJ [Suspect]
     Active Substance: DARATUMUMAB\HYALURONIDASE-FIHJ
     Dates: end: 20250917
  2. DEXAMETHASONE [Suspect]
     Active Substance: DEXAMETHASONE
     Dates: end: 20250917

REACTIONS (17)
  - Asthenia [None]
  - Muscular weakness [None]
  - Neuralgia [None]
  - Loss of personal independence in daily activities [None]
  - Fatigue [None]
  - Nausea [None]
  - Decreased appetite [None]
  - Weight decreased [None]
  - Failure to thrive [None]
  - Pulmonary mass [None]
  - Lung opacity [None]
  - Pulmonary mass [None]
  - Limb mass [None]
  - Lymphadenopathy [None]
  - Osteolysis [None]
  - Malignant neoplasm progression [None]
  - Squamous cell carcinoma [None]

NARRATIVE: CASE EVENT DATE: 20250930
